FAERS Safety Report 5289170-3 (Version None)
Quarter: 2007Q1

REPORT INFORMATION
  Report Type: 
  Country: None (occurrence: None)
  Receive Date: 20070125
  Receipt Date: 20060526
  Transmission Date: 20070707
  Serious: Yes (Hospitalization)
  Sender: FDA-Public Use
  Company Number: US200605006261

PATIENT
  Age: 13 Year
  Sex: Male

DRUGS (4)
  1. STRATTERA [Suspect]
     Indication: ATTENTION DEFICIT/HYPERACTIVITY DISORDER
     Dosage: 40 MG/2/D
     Dates: start: 20040101, end: 20040301
  2. ADDERALL XR (AMFETAMINE SULFATE, AMFETAMINE SULFATE, DEXAMFETAMINE SAC [Concomitant]
  3. RISPERDAL /SWE/ (RISPERIDONE) [Concomitant]
  4. CONCERTA [Concomitant]

REACTIONS (5)
  - DECREASED APPETITE [None]
  - DISCOMFORT [None]
  - DRUG INEFFECTIVE [None]
  - IRRITABILITY [None]
  - SUICIDAL IDEATION [None]
